FAERS Safety Report 6196452-X (Version None)
Quarter: 2009Q2

REPORT INFORMATION
  Report Type: 
  Country: None (occurrence: None)
  Receive Date: 20090520
  Receipt Date: 20090511
  Transmission Date: 20091009
  Serious: Yes (Hospitalization)
  Sender: FDA-Public Use
  Company Number: FR-JNJFOC-20090502603

PATIENT
  Sex: Female

DRUGS (11)
  1. RISPERDAL [Suspect]
     Indication: DRUG USE FOR UNKNOWN INDICATION
     Route: 048
  2. ARICEPT [Suspect]
     Indication: DRUG USE FOR UNKNOWN INDICATION
     Route: 048
  3. ZOLOFT [Suspect]
     Indication: DRUG USE FOR UNKNOWN INDICATION
     Route: 048
  4. ATHYMIL [Suspect]
     Indication: DRUG USE FOR UNKNOWN INDICATION
     Route: 065
  5. GAVISCON [Concomitant]
     Route: 065
  6. CORTANCYL [Concomitant]
     Route: 065
  7. FORLAX [Concomitant]
     Dosage: 4000 MACROGOL
     Route: 065
  8. NEXIUM [Concomitant]
     Route: 065
  9. LEVOTHYROX [Concomitant]
     Route: 065
  10. PRAZEPAM [Concomitant]
     Route: 065
  11. ALL OTHER THERAPEUTIC DRUG [Concomitant]
     Route: 065

REACTIONS (3)
  - BRONCHOPNEUMOPATHY [None]
  - STUPOR [None]
  - TONIC CONVULSION [None]
